FAERS Safety Report 5044301-5 (Version None)
Quarter: 2006Q2

REPORT INFORMATION
  Report Type: 
  Country: None (occurrence: None)
  Receive Date: 20060629
  Receipt Date: 20060621
  Transmission Date: 20061013
  Serious: Yes (Hospitalization, Other)
  Sender: FDA-Public Use
  Company Number: 2006078020

PATIENT
  Age: 69 Year
  Sex: Female

DRUGS (2)
  1. ARTHROTEC [Suspect]
     Indication: RHEUMATOID ARTHRITIS
  2. PREDNISOLONE [Suspect]
     Indication: RHEUMATOID ARTHRITIS

REACTIONS (1)
  - COLITIS [None]
